FAERS Safety Report 8784136 (Version 6)
Quarter: 2013Q2

REPORT INFORMATION
  Report Type: Spontaneous
  Country: US (occurrence: US)
  Receive Date: 20120913
  Receipt Date: 20130610
  Transmission Date: 20140414
  Serious: Yes (Hospitalization, Other)
  Sender: FDA-Public Use
  Company Number: US-009507513-1203USA01069

PATIENT
  Sex: Female
  Weight: 86.17 kg

DRUGS (6)
  1. FOSAMAX [Suspect]
     Indication: OSTEOPENIA
     Dosage: 70 MG, QW
     Route: 048
     Dates: start: 200112, end: 200512
  2. FOSAMAX [Suspect]
     Dosage: 70 MG, QW
     Route: 048
     Dates: start: 2006, end: 2006
  3. FOSAMAX [Suspect]
     Dosage: 70 MG, QW
     Route: 048
     Dates: start: 201004, end: 201103
  4. FOSAMAX PLUS D [Suspect]
     Indication: OSTEOPENIA
     Dosage: 70 MG, QW
     Route: 048
     Dates: start: 2005, end: 2006
  5. ACTONEL [Suspect]
     Indication: OSTEOPOROSIS
     Dosage: 35 MG, QW
     Dates: start: 200611, end: 201004
  6. ZOCOR [Concomitant]
     Indication: PRODUCT USED FOR UNKNOWN INDICATION
     Dosage: 5 MG, QD
     Route: 048
     Dates: end: 2006

REACTIONS (74)
  - Lumbar vertebral fracture [Unknown]
  - Spinal compression fracture [Unknown]
  - Open reduction of fracture [Unknown]
  - Haemorrhagic stroke [Unknown]
  - Cholecystectomy [Unknown]
  - Knee arthroplasty [Unknown]
  - Peroneal nerve palsy [Unknown]
  - Pulmonary embolism [Unknown]
  - Intestinal obstruction [Unknown]
  - Hernia obstructive [Unknown]
  - Strangulated hernia repair [Unknown]
  - Heparin-induced thrombocytopenia [Unknown]
  - Abdominal hernia [Unknown]
  - Cholecystitis [Unknown]
  - Pancreatitis [Unknown]
  - Femur fracture [Unknown]
  - Chronic obstructive pulmonary disease [Unknown]
  - Low turnover osteopathy [Unknown]
  - Impaired healing [Unknown]
  - Urinary tract infection [Unknown]
  - Migraine [Unknown]
  - Anxiety [Unknown]
  - Hypothyroidism [Unknown]
  - Clostridium difficile colitis [Unknown]
  - Deep vein thrombosis [Unknown]
  - Irritable bowel syndrome [Unknown]
  - Cataract [Unknown]
  - Pollakiuria [Unknown]
  - Tooth extraction [Unknown]
  - Fungal infection [Unknown]
  - Stress [Unknown]
  - Urinary incontinence [Unknown]
  - Intervertebral disc degeneration [Unknown]
  - Haemorrhoidal haemorrhage [Unknown]
  - Skin ulcer [Unknown]
  - Fungal infection [Not Recovered/Not Resolved]
  - Skin ulcer [Unknown]
  - Haemorrhoids [Unknown]
  - Ligament sprain [Unknown]
  - Abdominal hernia [Unknown]
  - Spinal osteoarthritis [Unknown]
  - Sciatica [Unknown]
  - Spinal column stenosis [Unknown]
  - Kyphosis [Unknown]
  - Muscle strain [Recovering/Resolving]
  - Drug administration error [Recovered/Resolved]
  - Intervertebral disc protrusion [Unknown]
  - Cerebral small vessel ischaemic disease [Unknown]
  - Confusion postoperative [Unknown]
  - Arthritis [Unknown]
  - Arthritis [Not Recovered/Not Resolved]
  - Depression [Unknown]
  - Depression [Unknown]
  - Cholelithiasis [Unknown]
  - Eczema [Unknown]
  - Blister [Unknown]
  - Pain in extremity [Recovering/Resolving]
  - Back pain [Unknown]
  - Lumbar vertebral fracture [Unknown]
  - Osteitis deformans [Unknown]
  - Oedema peripheral [Unknown]
  - Back pain [Unknown]
  - Pruritus [Unknown]
  - Constipation [Not Recovered/Not Resolved]
  - Drug ineffective [Unknown]
  - Drug ineffective [Unknown]
  - Diarrhoea [Recovered/Resolved]
  - Arthralgia [Unknown]
  - Abdominal discomfort [Recovered/Resolved]
  - Nausea [Unknown]
  - Gastrooesophageal reflux disease [Unknown]
  - Drug hypersensitivity [Unknown]
  - Headache [Unknown]
  - Meningioma [Unknown]
